FAERS Safety Report 16045672 (Version 1)
Quarter: 2019Q1

REPORT INFORMATION
  Report Type: Spontaneous
  Country: SE (occurrence: SE)
  Receive Date: 20190307
  Receipt Date: 20190307
  Transmission Date: 20190418
  Serious: Yes (Congenital Anomaly)
  Sender: FDA-Public Use
  Company Number: SE-ACCORD-111138

PATIENT
  Age: 0 Day
  Sex: Male

DRUGS (6)
  1. PREDNISOLONE PFIZER [Concomitant]
     Route: 064
  2. LEVAXIN [Concomitant]
     Active Substance: LEVOTHYROXINE SODIUM
     Route: 064
  3. LEVETIRACETAM ACCORD [Suspect]
     Active Substance: LEVETIRACETAM
     Indication: EPILEPSY
     Dosage: DOSE: 2, 1+1,5 TABLET
     Route: 064
  4. CALCICHEW-D3 CITRON [Concomitant]
     Route: 064
  5. FOLACIN [Concomitant]
     Route: 064
  6. DUROFERON 100 MG FE2 + PROLONGED-RELEASE TABLET [Concomitant]
     Route: 064

REACTIONS (2)
  - Foetal exposure during pregnancy [Unknown]
  - Pyloric stenosis [Unknown]
